FAERS Safety Report 13447614 (Version 1)
Quarter: 2017Q2

REPORT INFORMATION
  Report Type: Spontaneous
  Country: JP (occurrence: JP)
  Receive Date: 20170417
  Receipt Date: 20170417
  Transmission Date: 20170830
  Serious: Yes (Hospitalization, Other)
  Sender: FDA-Public Use
  Company Number: JP-GLAXOSMITHKLINE-JP2017JPN041002

PATIENT
  Age: 67 Year
  Sex: Female

DRUGS (9)
  1. LAMICTAL [Suspect]
     Active Substance: LAMOTRIGINE
     Indication: BIPOLAR DISORDER
     Dosage: 25 MG, 1D
     Route: 048
     Dates: start: 20170221, end: 20170228
  2. LAMICTAL [Suspect]
     Active Substance: LAMOTRIGINE
     Indication: DEPRESSED MOOD
     Dosage: 25 MG, QOD
     Route: 048
     Dates: start: 20170213, end: 20170221
  3. BELSOMRA [Suspect]
     Active Substance: SUVOREXANT
     Indication: INSOMNIA
     Dosage: 20 MG, QD
     Route: 048
     Dates: start: 20170221, end: 20170314
  4. LIMAS [Concomitant]
     Active Substance: LITHIUM CARBONATE
     Dosage: 200 MG, BID
     Dates: start: 20110310
  5. LAMICTAL [Suspect]
     Active Substance: LAMOTRIGINE
     Dosage: 25 MG, BID
     Route: 048
     Dates: start: 20170228, end: 20170314
  6. SEROQUEL [Concomitant]
     Active Substance: QUETIAPINE FUMARATE
     Dosage: 150 MG, 1D
  7. FLUNITRAZEPAM [Concomitant]
     Active Substance: FLUNITRAZEPAM
     Dosage: 1 MG, 1D
  8. AMLODIPINE [Concomitant]
     Active Substance: AMLODIPINE BESYLATE
     Dosage: 5 MG, QD
  9. CO-DIO [Concomitant]
     Active Substance: HYDROCHLOROTHIAZIDE\VALSARTAN
     Dosage: 1 DF, QD

REACTIONS (3)
  - Drug eruption [Unknown]
  - Rash [Unknown]
  - Drug reaction with eosinophilia and systemic symptoms [Not Recovered/Not Resolved]

NARRATIVE: CASE EVENT DATE: 201703
